FAERS Safety Report 6971392-4 (Version None)
Quarter: 2010Q3

REPORT INFORMATION
  Report Type: 
  Country: None (occurrence: None)
  Receive Date: 20100903
  Receipt Date: 20100820
  Transmission Date: 20110219
  Serious: Yes (Other)
  Sender: FDA-Public Use
  Company Number: 2010AP001786

PATIENT
  Age: 67 Year
  Sex: Female

DRUGS (1)
  1. CALCITONIN SALMON [Suspect]
     Indication: OSTEOPOROSIS
     Dosage: QD; TOP
     Route: 061
     Dates: start: 20100101, end: 20100101

REACTIONS (2)
  - ATRIAL FIBRILLATION [None]
  - OFF LABEL USE [None]
